FAERS Safety Report 8935207 (Version 1)
Quarter: 2012Q4

REPORT INFORMATION
  Report Type: 
  Country: ES (occurrence: ES)
  Receive Date: 20121129
  Receipt Date: 20121129
  Transmission Date: 20130627
  Serious: Yes (Other)
  Sender: FDA-Public Use
  Company Number: PHHY2012ES108326

PATIENT
  Age: 75 Year
  Sex: Female

DRUGS (3)
  1. THIAMAZOLE [Suspect]
     Indication: HYPERTHYROIDISM
     Dosage: 20 mg, QD
  2. THIAMAZOLE [Suspect]
     Dosage: 15 mg, QD
  3. CARBIMAZOLE [Suspect]
     Dosage: 15 mg, QD

REACTIONS (1)
  - Hepatic necrosis [Recovered/Resolved]
